FAERS Safety Report 8317262-0 (Version None)
Quarter: 2012Q2

REPORT INFORMATION
  Report Type: 
  Country: None (occurrence: None)
  Receive Date: 20120427
  Receipt Date: 20120419
  Transmission Date: 20120825
  Serious: Yes (Life-Threatening, Hospitalization)
  Sender: FDA-Public Use
  Company Number: KR-MPIJNJ-2012-02502

PATIENT

DRUGS (4)
  1. MELPHALAN HYDROCHLORIDE [Suspect]
     Indication: MULTIPLE MYELOMA
     Dosage: 18 MG/M2, UNK
     Dates: start: 20120127, end: 20120130
  2. VELCADE [Suspect]
     Indication: MULTIPLE MYELOMA
     Dosage: 1.3 MG/M2, UNK
     Route: 042
     Dates: start: 20120127, end: 20120401
  3. MELPHALAN HYDROCHLORIDE [Suspect]
     Dosage: 11 MG/M2, UNK
     Dates: start: 20120322, end: 20120325
  4. PREDNISOLONE [Suspect]
     Indication: MULTIPLE MYELOMA
     Dosage: 58 MG/M2, UNK
     Dates: start: 20120127, end: 20120130

REACTIONS (4)
  - SEPTIC SHOCK [None]
  - NEUTROPENIA [None]
  - PNEUMONIA [None]
  - THROMBOCYTOPENIA [None]
